FAERS Safety Report 6144084-1 (Version None)
Quarter: 2009Q2

REPORT INFORMATION
  Report Type: 
  Country: None (occurrence: None)
  Receive Date: 20090406
  Receipt Date: 20090327
  Transmission Date: 20091009
  Serious: Yes (Hospitalization)
  Sender: FDA-Public Use
  Company Number: US-BIOGENIDEC-2009BI006243

PATIENT
  Age: 57 Year
  Sex: Female

DRUGS (1)
  1. TYSABRI [Suspect]
     Indication: MULTIPLE SCLEROSIS
     Route: 042
     Dates: start: 20080521, end: 20090130

REACTIONS (13)
  - BLADDER DISORDER [None]
  - BRAIN OEDEMA [None]
  - DIPLOPIA [None]
  - DIZZINESS [None]
  - EMOTIONAL DISORDER [None]
  - FALL [None]
  - HEADACHE [None]
  - HEMIPLEGIA [None]
  - MUSCLE SPASMS [None]
  - NAUSEA [None]
  - NECK PAIN [None]
  - NUCLEAR MAGNETIC RESONANCE IMAGING ABNORMAL [None]
  - VIRAEMIA [None]
